FAERS Safety Report 24932139 (Version 1)
Quarter: 2025Q1

REPORT INFORMATION
  Report Type: Report from Study
  Country: US (occurrence: US)
  Receive Date: 20250205
  Receipt Date: 20250205
  Transmission Date: 20250409
  Serious: No
  Sender: EXELIXIS
  Company Number: US-EXELIXIS-CABO-24079754

PATIENT
  Age: 77 Year
  Sex: Female
  Weight: 98.984 kg

DRUGS (1)
  1. CABOMETYX [Suspect]
     Active Substance: CABOZANTINIB S-MALATE
     Indication: Renal cancer
     Dosage: 20 MG, QD
     Route: 048
     Dates: start: 20231017

REACTIONS (4)
  - Limb discomfort [Unknown]
  - Thyroid disorder [Unknown]
  - Fatigue [Unknown]
  - Sciatica [Unknown]

NARRATIVE: CASE EVENT DATE: 20240601
